FAERS Safety Report 17718911 (Version 1)
Quarter: 2020Q2

REPORT INFORMATION
  Report Type: Spontaneous
  Country: ES (occurrence: ES)
  Receive Date: 20200428
  Receipt Date: 20200428
  Transmission Date: 20200714
  Serious: Yes (Life-Threatening, Hospitalization, Other)
  Sender: FDA-Public Use
  Company Number: ES-PFIZER INC-2020167250

PATIENT
  Age: 54 Year
  Sex: Female

DRUGS (8)
  1. BUPROPION HYDROCHLORIDE. [Suspect]
     Active Substance: BUPROPION HYDROCHLORIDE
     Dosage: 1800 MG, SINGLE
     Route: 048
     Dates: start: 20200303, end: 20200303
  2. CLOTIAPINE [Suspect]
     Active Substance: CLOTHIAPINE
     Dosage: 240 MG, SINGLE
     Route: 048
     Dates: start: 20200303, end: 20200303
  3. PROPRANOLOL [Suspect]
     Active Substance: PROPRANOLOL HYDROCHLORIDE
     Dosage: 720 MG, SINGLE
     Route: 048
  4. GABAPENTIN. [Suspect]
     Active Substance: GABAPENTIN
     Dosage: 4050 MG, SINGLE
     Route: 048
     Dates: start: 20200303, end: 20200303
  5. QUETIAPINE. [Suspect]
     Active Substance: QUETIAPINE
     Dosage: 7200 MG, SINGLE
     Route: 048
     Dates: start: 20200303, end: 20200303
  6. DIAZEPAM. [Suspect]
     Active Substance: DIAZEPAM
     Dosage: 60 MG, SINGLE
     Route: 048
     Dates: start: 20200303, end: 20200303
  7. CLONAZEPAM. [Suspect]
     Active Substance: CLONAZEPAM
     Dosage: 48 MG, SINGLE
     Route: 048
     Dates: start: 20200303, end: 20200303
  8. ZONISAMIDE. [Suspect]
     Active Substance: ZONISAMIDE
     Dosage: 600 MG
     Route: 048
     Dates: start: 20200303, end: 20200303

REACTIONS (2)
  - Coma [Recovered/Resolved]
  - Suicide attempt [Unknown]

NARRATIVE: CASE EVENT DATE: 20200303
